FAERS Safety Report 25273267 (Version 1)
Quarter: 2025Q2

REPORT INFORMATION
  Report Type: Spontaneous
  Country: US (occurrence: US)
  Receive Date: 20250506
  Receipt Date: 20250506
  Transmission Date: 20250716
  Serious: Yes (Other)
  Sender: AMNEAL
  Company Number: US-AMNEAL PHARMACEUTICALS-2024-AMRX-01914

PATIENT
  Sex: Female
  Weight: 46.259 kg

DRUGS (6)
  1. VIGABATRIN [Suspect]
     Active Substance: VIGABATRIN
     Indication: Focal dyscognitive seizures
     Dosage: 1000 MG, 20 ML 2 /DAY
     Route: 048
     Dates: start: 2019
  2. VIGABATRIN [Suspect]
     Active Substance: VIGABATRIN
     Indication: Tuberous sclerosis complex
  3. RISPERIDONE [Concomitant]
     Active Substance: RISPERIDONE
     Indication: Product used for unknown indication
     Route: 065
  4. CLOBAZAM [Concomitant]
     Active Substance: CLOBAZAM
     Indication: Product used for unknown indication
     Route: 048
  5. CLONIDINE HYDROCHLORIDE [Concomitant]
     Active Substance: CLONIDINE HYDROCHLORIDE
     Indication: Product used for unknown indication
     Route: 065
  6. VALTOCO [Concomitant]
     Active Substance: DIAZEPAM
     Indication: Product used for unknown indication
     Route: 065

REACTIONS (4)
  - Seizure [Unknown]
  - Drooling [Unknown]
  - Pain [Unknown]
  - Product dose omission issue [Unknown]
